FAERS Safety Report 8045001-X (Version None)
Quarter: 2012Q1

REPORT INFORMATION
  Report Type: 
  Country: None (occurrence: None)
  Receive Date: 20120111
  Receipt Date: 20120111
  Transmission Date: 20120608
  Serious: No
  Sender: FDA-Public Use
  Company Number: None

PATIENT
  Age: 58 Year
  Sex: Female
  Weight: 49.8957 kg

DRUGS (1)
  1. KLONOPIN [Suspect]

REACTIONS (3)
  - VISUAL ACUITY REDUCED [None]
  - EYELID OEDEMA [None]
  - ALOPECIA [None]
